FAERS Safety Report 5655533-7 (Version None)
Quarter: 2008Q1

REPORT INFORMATION
  Report Type: 
  Country: None (occurrence: None)
  Receive Date: 20080219
  Receipt Date: 20080109
  Transmission Date: 20080703
  Serious: No
  Sender: FDA-Public Use
  Company Number: WAES 0801USA01722

PATIENT
  Age: 84 Year
  Sex: Male

DRUGS (12)
  1. JANUVIA [Suspect]
     Indication: TYPE 2 DIABETES MELLITUS
     Dosage: 100 MG/DAILY/PO
     Route: 048
     Dates: start: 20071009
  2. COREG [Concomitant]
  3. FLOMAX  (MORNIFLUMATE) [Concomitant]
  4. LASIX [Concomitant]
  5. NEXIUM [Concomitant]
  6. NITROGLYCERIN [Concomitant]
  7. PLAVIX [Concomitant]
  8. TRIGLIDE [Concomitant]
  9. VYTORIN [Concomitant]
  10. ALLOPURINOL [Concomitant]
  11. GLIPIZIDE [Concomitant]
  12. LISINOPRIL [Concomitant]

REACTIONS (1)
  - WEIGHT INCREASED [None]
